FAERS Safety Report 12176252 (Version 2)
Quarter: 2016Q4

REPORT INFORMATION
  Report Type: Spontaneous
  Country: US (occurrence: US)
  Receive Date: 20160315
  Receipt Date: 20161004
  Transmission Date: 20170207
  Serious: Yes (Other)
  Sender: FDA-Public Use
  Company Number: US-AMGEN-USASP2016029779

PATIENT
  Sex: Male

DRUGS (2)
  1. XGEVA [Suspect]
     Active Substance: DENOSUMAB
     Indication: COLORECTAL CANCER
     Dosage: UNK
     Route: 065
  2. AVASTIN                            /00848101/ [Concomitant]
     Active Substance: SIMVASTATIN

REACTIONS (1)
  - Osteonecrosis of jaw [Unknown]
